FAERS Safety Report 8671101 (Version 3)
Quarter: 2012Q4

REPORT INFORMATION
  Report Type: 
  Country: JP (occurrence: JP)
  Receive Date: 20120718
  Receipt Date: 20121030
  Transmission Date: 20130627
  Serious: Yes (Death)
  Sender: FDA-Public Use
  Company Number: JP-JNJFOC-20120707419

PATIENT
  Age: 79 Year
  Sex: Male

DRUGS (22)
  1. FINIBAX [Suspect]
     Indication: PNEUMONIA
     Route: 041
     Dates: start: 20120228, end: 20120312
  2. FINIBAX [Suspect]
     Indication: PNEUMONIA
     Route: 041
     Dates: start: 20120227, end: 20120227
  3. BAKTAR [Suspect]
     Indication: PNEUMONIA
     Route: 048
     Dates: start: 20120227, end: 20120318
  4. CIPROFLOXACIN [Suspect]
     Indication: PNEUMONIA
     Route: 065
     Dates: start: 20120227, end: 20120304
  5. RISPERDAL [Concomitant]
     Indication: PNEUMONIA
     Route: 048
     Dates: start: 20120302
  6. BAKTAR [Concomitant]
     Indication: PNEUMONIA
     Route: 048
     Dates: start: 20120319
  7. SOLU MEDROL [Concomitant]
     Indication: PNEUMONIA
     Route: 065
     Dates: start: 20120227, end: 20120311
  8. PREDONINE [Concomitant]
     Indication: PNEUMONIA
     Route: 065
     Dates: start: 20120312, end: 20120319
  9. ELASPOL [Concomitant]
     Indication: PNEUMONIA
     Route: 065
     Dates: start: 20120227, end: 20120311
  10. HEPARIN SODIUM [Concomitant]
     Indication: PNEUMONIA
     Route: 065
     Dates: start: 20120227
  11. LASIX [Concomitant]
     Indication: PNEUMONIA
     Route: 065
     Dates: start: 20120227, end: 20120301
  12. INOVAN [Concomitant]
     Indication: PNEUMONIA
     Route: 065
     Dates: start: 20120227, end: 20120318
  13. GASTER [Concomitant]
     Indication: PROPHYLAXIS
     Route: 065
     Dates: start: 20120228, end: 20120229
  14. MUCOSOLVAN [Concomitant]
     Indication: PNEUMONIA
     Route: 048
     Dates: start: 20120302
  15. GANCICLOVIR [Concomitant]
     Indication: PNEUMONIA
     Route: 065
     Dates: start: 20120326
  16. BENAMBAX [Concomitant]
     Indication: PNEUMONIA
     Route: 065
     Dates: start: 20120327
  17. TAKEPRON [Concomitant]
     Indication: PROPHYLAXIS
     Route: 048
     Dates: start: 20120301
  18. RACOL [Concomitant]
     Indication: PNEUMONIA
     Route: 048
     Dates: start: 20120301
  19. AMLODIN OD [Concomitant]
     Route: 048
     Dates: start: 20120302, end: 20120325
  20. KLARICID [Concomitant]
     Indication: PNEUMONIA
     Route: 048
     Dates: start: 20120330
  21. MAGLAX [Concomitant]
     Route: 048
     Dates: start: 20120314
  22. INTRAVENOUS HYPERALIMENTATION [Concomitant]
     Route: 042

REACTIONS (3)
  - Acute respiratory distress syndrome [Fatal]
  - Aspartate aminotransferase increased [Recovered/Resolved]
  - Alanine aminotransferase increased [Recovered/Resolved]
